FAERS Safety Report 7146314-6 (Version None)
Quarter: 2010Q4

REPORT INFORMATION
  Report Type: 
  Country: None (occurrence: None)
  Receive Date: 20101208
  Receipt Date: 20101130
  Transmission Date: 20110411
  Serious: Yes (Death, Hospitalization)
  Sender: FDA-Public Use
  Company Number: US-PURDUE-USA-2010-0046978

PATIENT
  Sex: Male

DRUGS (1)
  1. OXYCONTIN [Suspect]
     Indication: SPINAL CORD INJURY
     Dosage: 80 MG, SINGLE
     Dates: start: 20100801, end: 20100820

REACTIONS (6)
  - CONVULSION [None]
  - DRUG INEFFECTIVE [None]
  - MALAISE [None]
  - MEMORY IMPAIRMENT [None]
  - MYOCARDIAL INFARCTION [None]
  - PRODUCT QUALITY ISSUE [None]
